FAERS Safety Report 8543408-5 (Version None)
Quarter: 2012Q3

REPORT INFORMATION
  Report Type: 
  Country: None (occurrence: None)
  Receive Date: 20120727
  Receipt Date: 20120716
  Transmission Date: 20120928
  Serious: Yes (Hospitalization)
  Sender: FDA-Public Use
  Company Number: US-BAYER-2012-022097

PATIENT
  Age: 21 Year
  Sex: Female
  Weight: 70.748 kg

DRUGS (3)
  1. ASCORBIC ACID [Concomitant]
     Dosage: DAILY
     Route: 048
  2. YAZ [Suspect]
     Indication: CONTRACEPTION
     Dosage: UNK
     Dates: start: 20081201, end: 20100301
  3. NASONEX [Concomitant]
     Indication: SEASONAL ALLERGY
     Dosage: UNK
     Dates: start: 20080101

REACTIONS (4)
  - FEAR [None]
  - PAIN [None]
  - PULMONARY EMBOLISM [None]
  - DYSPEPSIA [None]
